FAERS Safety Report 16964264 (Version 1)
Quarter: 2019Q4

REPORT INFORMATION
  Report Type: Spontaneous
  Country: US (occurrence: US)
  Receive Date: 20191025
  Receipt Date: 20191025
  Transmission Date: 20200122
  Serious: Yes (Life-Threatening, Other)
  Sender: FDA-Public Use
  Company Number: None

PATIENT
  Age: 59 Year
  Sex: Female
  Weight: 81.9 kg

DRUGS (1)
  1. PROPOFOL IS WHAT I WAS TOLD I WAS GIVEN. I DID NOT SEE THE DRUG. [Suspect]
     Active Substance: PROPOFOL

REACTIONS (4)
  - Vomiting [None]
  - Pneumonia aspiration [None]
  - Oxygen saturation decreased [None]
  - Dyspnoea [None]

NARRATIVE: CASE EVENT DATE: 20191024
